FAERS Safety Report 9606769 (Version 2)
Quarter: 2013Q4

REPORT INFORMATION
  Report Type: Spontaneous
  Country: US (occurrence: US)
  Receive Date: 20131008
  Receipt Date: 20131031
  Transmission Date: 20140711
  Serious: Yes (Other)
  Sender: FDA-Public Use
  Company Number: US-AMGEN-USASP2013062837

PATIENT
  Age: 77 Year
  Sex: Female

DRUGS (1)
  1. PROLIA [Suspect]
     Indication: OSTEOPOROSIS POSTMENOPAUSAL
     Dosage: 60 MG, Q6MO
     Route: 065
     Dates: start: 201308

REACTIONS (15)
  - Confusional state [Unknown]
  - General physical health deterioration [Unknown]
  - Decreased appetite [Recovered/Resolved]
  - Vomiting [Recovered/Resolved]
  - Diarrhoea [Recovered/Resolved]
  - Nausea [Recovered/Resolved]
  - Feeling abnormal [Recovered/Resolved]
  - Influenza [Unknown]
  - Pain [Unknown]
  - Gait disturbance [Unknown]
  - Vomiting projectile [Unknown]
  - Fatigue [Recovered/Resolved]
  - Asthenia [Recovered/Resolved]
  - Arthralgia [Unknown]
  - Bone pain [Unknown]
